FAERS Safety Report 15433082 (Version 1)
Quarter: 2018Q3

REPORT INFORMATION
  Report Type: Spontaneous
  Country: US (occurrence: US)
  Receive Date: 20180927
  Receipt Date: 20180927
  Transmission Date: 20181010
  Serious: No
  Sender: FDA-Public Use
  Company Number: US-NOVEN PHARMACEUTICALS, INC.-US2017001303

PATIENT

DRUGS (2)
  1. COMBIPATCH [Suspect]
     Active Substance: ESTRADIOL\NORETHINDRONE ACETATE
     Indication: ROUTINE HEALTH MAINTENANCE
     Dosage: 50/250 MG, 1/WEEK
     Route: 062
  2. VITAMINS [Concomitant]
     Active Substance: VITAMINS

REACTIONS (5)
  - Inappropriate schedule of drug administration [Unknown]
  - Prescribed underdose [Unknown]
  - Product quality issue [Unknown]
  - Off label use [Unknown]
  - No adverse event [Unknown]
